FAERS Safety Report 24241532 (Version 3)
Quarter: 2024Q3

REPORT INFORMATION
  Report Type: Report from Study
  Country: CA (occurrence: CA)
  Receive Date: 20240823
  Receipt Date: 20240920
  Transmission Date: 20241016
  Serious: Yes (Death, Other)
  Sender: ABBVIE
  Company Number: CA-ABBVIE-5890762

PATIENT
  Age: 61 Year
  Sex: Male

DRUGS (3)
  1. SKYRIZI [Suspect]
     Active Substance: RISANKIZUMAB-RZAA
     Indication: Crohn^s disease
     Route: 058
     Dates: start: 20240715, end: 20240715
  2. SKYRIZI [Suspect]
     Active Substance: RISANKIZUMAB-RZAA
     Route: 058
  3. SKYRIZI [Suspect]
     Active Substance: RISANKIZUMAB-RZAA
     Indication: Crohn^s disease
     Dosage: FREQUENCY TEXT:  AT WEEK 0, 4, AND 8,?LAST ADMIN DATE : 2024
     Route: 042
     Dates: start: 20240129

REACTIONS (14)
  - Cardiac arrest [Fatal]
  - Vasoplegia syndrome [Unknown]
  - Ileostomy [Unknown]
  - Confusional state [Unknown]
  - Metabolic disorder [Unknown]
  - Pain [Unknown]
  - Acute kidney injury [Fatal]
  - Asthenia [Unknown]
  - Multiple organ dysfunction syndrome [Fatal]
  - Acidosis [Unknown]
  - Bradycardia [Unknown]
  - Ureteral stent insertion [Unknown]
  - Colitis [Unknown]
  - Incoherent [Unknown]

NARRATIVE: CASE EVENT DATE: 20240101
